FAERS Safety Report 12402540 (Version 2)
Quarter: 2016Q3

REPORT INFORMATION
  Report Type: Spontaneous
  Country: DK (occurrence: DK)
  Receive Date: 20160525
  Receipt Date: 20160901
  Transmission Date: 20161109
  Serious: Yes (Death, Hospitalization, Other)
  Sender: FDA-Public Use
  Company Number: DK-PFIZER INC-2016265237

PATIENT
  Age: 69 Year
  Sex: Male

DRUGS (15)
  1. SIMVASTATIN. [Concomitant]
     Active Substance: SIMVASTATIN
     Dosage: 20 MG, 1X/DAY
  2. VICTOZA [Concomitant]
     Active Substance: LIRAGLUTIDE
     Dosage: 1 DF, UNK
  3. HJERTEMAGNYL [Concomitant]
     Active Substance: ASPIRIN\MAGNESIUM OXIDE
     Dosage: 75 MG, 1X/DAY
  4. IBUPROFEN. [Concomitant]
     Active Substance: IBUPROFEN
     Dosage: 400 MG, 3X/DAY
  5. ADRIAMYCIN [Suspect]
     Active Substance: DOXORUBICIN HYDROCHLORIDE
     Indication: FOLLICLE CENTRE LYMPHOMA, FOLLICULAR GRADE I, II, III
     Dosage: 100 MG AT EVERY TREATMENT
     Route: 042
     Dates: start: 20121012, end: 20130125
  6. PINEX [Concomitant]
     Active Substance: ACETAMINOPHEN
     Dosage: 500 MG X 6
  7. GLIMEPIRIDE. [Concomitant]
     Active Substance: GLIMEPIRIDE
     Dosage: 3 MG, 1X/DAY
  8. METOPROLOL SUCCINATE. [Concomitant]
     Active Substance: METOPROLOL SUCCINATE
     Dosage: 75 MG, 1X/DAY
  9. MABTHERA [Suspect]
     Active Substance: RITUXIMAB
     Indication: FOLLICLE CENTRE LYMPHOMA, FOLLICULAR GRADE I, II, III
     Dosage: 800 MG AT EVERY TREATMENT
     Route: 042
     Dates: start: 20121012, end: 20130429
  10. ONCOVIN [Suspect]
     Active Substance: VINCRISTINE SULFATE
     Indication: FOLLICLE CENTRE LYMPHOMA, FOLLICULAR GRADE I, II, III
     Dosage: 2 MG AT EVERY TREATMENT. STRENGHT: 1 MG/ML.
     Route: 042
     Dates: start: 20121012, end: 20130125
  11. SENDOXAN [Suspect]
     Active Substance: CYCLOPHOSPHAMIDE
     Indication: FOLLICLE CENTRE LYMPHOMA, FOLLICULAR GRADE I, II, III
     Dosage: 1500 MG AT EVERY TREATMENT
     Route: 042
     Dates: start: 20121012, end: 20130125
  12. MAREVAN [Concomitant]
     Active Substance: WARFARIN SODIUM
     Dosage: 25 MG, 10 PER WEEK
  13. DICLON [Concomitant]
     Active Substance: DICLOFENAC SODIUM
     Dosage: 100 MG, 1X/DAY
  14. ACICLOVIR [Concomitant]
     Active Substance: ACYCLOVIR
     Dosage: UNK
  15. CODEINE [Concomitant]
     Active Substance: CODEINE
     Dosage: 25 MG, 4X/DAY

REACTIONS (20)
  - Cardiac failure [Fatal]
  - Asthenia [Not Recovered/Not Resolved]
  - Decreased appetite [Unknown]
  - Follicle centre lymphoma, follicular grade I, II, III [Unknown]
  - Cardiomegaly [Fatal]
  - Ejection fraction decreased [Fatal]
  - Second primary malignancy [Unknown]
  - Pneumonia [Recovered/Resolved]
  - Second primary malignancy [Unknown]
  - Basal cell carcinoma [Unknown]
  - Disease progression [Unknown]
  - Pleural effusion [Unknown]
  - Fatigue [Not Recovered/Not Resolved]
  - Hallucination [Unknown]
  - Oedema peripheral [Not Recovered/Not Resolved]
  - Ascites [Unknown]
  - Dyspnoea [Not Recovered/Not Resolved]
  - Feeling of body temperature change [Recovered/Resolved]
  - Squamous cell carcinoma [Unknown]
  - Pyrexia [Recovered/Resolved]

NARRATIVE: CASE EVENT DATE: 20130203
